FAERS Safety Report 7638890-1 (Version None)
Quarter: 2011Q3

REPORT INFORMATION
  Report Type: 
  Country: None (occurrence: None)
  Receive Date: 20110721
  Receipt Date: 20110718
  Transmission Date: 20111222
  Serious: Yes (Other)
  Sender: FDA-Public Use
  Company Number: A0937140A

PATIENT
  Age: 81 Year
  Sex: Male

DRUGS (1)
  1. DIPHENHYDRAMINE HYDROCHLORIDE CAP [Suspect]
     Indication: SLEEP DISORDER
     Dates: start: 20110717

REACTIONS (3)
  - HALLUCINATION [None]
  - DRUG INEFFECTIVE [None]
  - SUDDEN ONSET OF SLEEP [None]
